FAERS Safety Report 8168499-5 (Version None)
Quarter: 2012Q1

REPORT INFORMATION
  Report Type: 
  Country: None (occurrence: None)
  Receive Date: 20120227
  Receipt Date: 20120227
  Transmission Date: 20120608
  Serious: Yes (Hospitalization)
  Sender: FDA-Public Use
  Company Number: None

PATIENT
  Age: 59 Year
  Sex: Female

DRUGS (1)
  1. PROLIA [Suspect]
     Indication: OSTEOPOROSIS
     Dosage: 60.0 MG
     Route: 058
     Dates: start: 20120217, end: 20120817

REACTIONS (3)
  - HYPOCALCAEMIA [None]
  - ELECTROLYTE IMBALANCE [None]
  - HYPOPHOSPHATAEMIA [None]
